FAERS Safety Report 19928782 (Version 1)
Quarter: 2021Q4

REPORT INFORMATION
  Report Type: Spontaneous
  Country: US (occurrence: US)
  Receive Date: 20211005
  Receipt Date: 20211005
  Transmission Date: 20220303
  Serious: Yes (Hospitalization)
  Sender: FDA-Public Use
  Company Number: None

PATIENT
  Sex: Female

DRUGS (11)
  1. DALFAMPRIDINE [Suspect]
     Active Substance: DALFAMPRIDINE
     Indication: Multiple sclerosis
     Dosage: ?          OTHER FREQUENCY:Q12HR;
     Route: 048
     Dates: start: 20210402
  2. BACLOFEN [Concomitant]
     Active Substance: BACLOFEN
  3. HORMOME BASE CRE [Concomitant]
  4. METOPROL TAR [Concomitant]
  5. OCREVUS [Concomitant]
     Active Substance: OCRELIZUMAB
  6. OMEPRAZOLE [Concomitant]
     Active Substance: OMEPRAZOLE
  7. OXAZEPAM [Concomitant]
     Active Substance: OXAZEPAM
  8. OXYBUTYNIN. [Concomitant]
     Active Substance: OXYBUTYNIN CHLORIDE
  9. TRULICITY [Concomitant]
     Active Substance: DULAGLUTIDE
  10. VITAMIN D [Concomitant]
     Active Substance: VITAMIN D NOS
  11. XIGDUO XR [Concomitant]
     Active Substance: DAPAGLIFLOZIN PROPANEDIOL\METFORMIN HYDROCHLORIDE

REACTIONS (3)
  - Knee operation [None]
  - Micturition urgency [None]
  - Urinary incontinence [None]
